FAERS Safety Report 26100072 (Version 1)
Quarter: 2025Q4

REPORT INFORMATION
  Report Type: Spontaneous
  Country: US (occurrence: US)
  Receive Date: 20251128
  Receipt Date: 20251128
  Transmission Date: 20260118
  Serious: No
  Sender: SANDOZ
  Company Number: US-SANDOZ-SDZ2025US074530

PATIENT

DRUGS (2)
  1. HYRIMOZ [Suspect]
     Active Substance: ADALIMUMAB-ADAZ
     Indication: Product used for unknown indication
     Dosage: HYRIMOZ (ADALIMUMAB-ADAZ) 40MG  INJECTION, FOR SUBCUTANEOUS USE IN  PREFILLED SYRINGE
     Route: 058
  2. HYRIMOZ [Suspect]
     Active Substance: ADALIMUMAB-ADAZ
     Indication: Product used for unknown indication
     Dosage: HYRIMOZ (ADALIMUMAB-ADAZ) 40MG  INJECTION, FOR SUBCUTANEOUS USE IN  PREFILLED SYRINGE
     Route: 058

REACTIONS (1)
  - Injection site pain [Unknown]
